FAERS Safety Report 5107090-1 (Version None)
Quarter: 2006Q3

REPORT INFORMATION
  Report Type: 
  Country: None (occurrence: None)
  Receive Date: 20060731
  Receipt Date: 20060501
  Transmission Date: 20061208
  Serious: No
  Sender: FDA-Public Use
  Company Number: 2006PV013100

PATIENT
  Age: 64 Year
  Sex: Male
  Weight: 112.9457 kg

DRUGS (21)
  1. BYETTA [Suspect]
     Indication: DIABETES MELLITUS NON-INSULIN-DEPENDENT
     Dosage: SEE IMAGE
     Route: 058
     Dates: start: 20051228, end: 20060128
  2. BYETTA [Suspect]
     Indication: WEIGHT DECREASED
     Dosage: SEE IMAGE
     Route: 058
     Dates: start: 20051228, end: 20060128
  3. BYETTA [Suspect]
     Indication: DIABETES MELLITUS NON-INSULIN-DEPENDENT
     Dosage: SEE IMAGE
     Route: 058
     Dates: start: 20060303, end: 20060404
  4. BYETTA [Suspect]
     Indication: WEIGHT DECREASED
     Dosage: SEE IMAGE
     Route: 058
     Dates: start: 20060303, end: 20060404
  5. BYETTA [Suspect]
     Indication: DIABETES MELLITUS NON-INSULIN-DEPENDENT
     Dosage: SEE IMAGE
     Route: 058
     Dates: start: 20060405
  6. BYETTA [Suspect]
     Indication: WEIGHT DECREASED
     Dosage: SEE IMAGE
     Route: 058
     Dates: start: 20060405
  7. GLUCOTROL [Concomitant]
  8. METFORMIN HCL [Concomitant]
  9. LANTUS [Concomitant]
  10. LANTUS [Concomitant]
  11. DIGOXIN [Concomitant]
  12. DIGOXIN [Concomitant]
  13. MAVIK [Concomitant]
  14. SPIRONOLACTONE [Concomitant]
  15. COREG [Concomitant]
  16. PREVACID [Concomitant]
  17. LEVOXYL [Concomitant]
  18. CYTOMEL [Concomitant]
  19. FUROSEMIDE [Concomitant]
  20. FUROSEMIDE [Concomitant]
  21. FUROSEMIDE [Concomitant]

REACTIONS (4)
  - BLOOD GLUCOSE INCREASED [None]
  - NAUSEA [None]
  - VOMITING [None]
  - WEIGHT DECREASED [None]
